FAERS Safety Report 22829042 (Version 4)
Quarter: 2024Q4

REPORT INFORMATION
  Report Type: Spontaneous
  Country: JP (occurrence: JP)
  Receive Date: 20230816
  Receipt Date: 20241119
  Transmission Date: 20250115
  Serious: Yes (Other)
  Sender: MERCK
  Company Number: JP-MSD-2303JPN000671J

PATIENT
  Sex: Female

DRUGS (2)
  1. KEYTRUDA [Suspect]
     Active Substance: PEMBROLIZUMAB
     Indication: Uterine cancer
     Dosage: 200 MILLIGRAM, Q3W
     Route: 041
     Dates: start: 2022
  2. LENVATINIB MESYLATE [Suspect]
     Active Substance: LENVATINIB MESYLATE
     Dosage: UNK
     Route: 048
     Dates: start: 2022

REACTIONS (25)
  - Cutaneous symptom [Unknown]
  - Electrolyte imbalance [Unknown]
  - Embolism [Unknown]
  - Cholecystitis [Unknown]
  - Cardiac failure acute [Unknown]
  - Lower gastrointestinal haemorrhage [Unknown]
  - Facial paralysis [Unknown]
  - Hypertension [Unknown]
  - Platelet count decreased [Unknown]
  - Hepatic function abnormal [Unknown]
  - Fatigue [Unknown]
  - Decreased appetite [Unknown]
  - Proteinuria [Unknown]
  - Palmar-plantar erythrodysaesthesia syndrome [Unknown]
  - Immune-mediated adrenal insufficiency [Unknown]
  - Renal impairment [Unknown]
  - Interstitial lung disease [Unknown]
  - Enterocolitis [Unknown]
  - Thyroid disorder [Unknown]
  - Skin disorder [Unknown]
  - Ataxia [Unknown]
  - Diarrhoea [Unknown]
  - Pyrexia [Unknown]
  - Malaise [Unknown]
  - Arthralgia [Unknown]
